FAERS Safety Report 8397178-4 (Version None)
Quarter: 2012Q2

REPORT INFORMATION
  Report Type: 
  Country: None (occurrence: None)
  Receive Date: 20120530
  Receipt Date: 20120524
  Transmission Date: 20120825
  Serious: Yes (Other)
  Sender: FDA-Public Use
  Company Number: US-PFIZER INC-2012126379

PATIENT
  Sex: Male

DRUGS (6)
  1. DIOVAN [Concomitant]
     Dosage: 150 MG, 1X/DAY
  2. DILANTIN [Suspect]
     Indication: BRAIN INJURY
     Dosage: 30 MG, 1X/DAY
     Route: 048
  3. ALENDRONATE SODIUM [Concomitant]
     Dosage: 70 MG, WEEKLY
  4. PHENYTOIN SODIUM [Suspect]
     Dosage: 100 MG, 3X/DAY
     Route: 048
     Dates: start: 20120101
  5. NEURONTIN [Suspect]
     Indication: CONVULSION
     Dosage: 300 MG, 4X/DAY
     Route: 048
  6. SYNTHROID [Concomitant]
     Dosage: 0.025 MG, 1X/DAY

REACTIONS (2)
  - CONVULSION [None]
  - ENURESIS [None]
